FAERS Safety Report 9564833 (Version 1)
Quarter: 2013Q3

REPORT INFORMATION
  Report Type: Spontaneous
  Country: RS (occurrence: RS)
  Receive Date: 20130930
  Receipt Date: 20130930
  Transmission Date: 20140515
  Serious: Yes (Death)
  Sender: FDA-Public Use
  Company Number: RS-JNJFOC-20130913825

PATIENT
  Age: 32 Year
  Sex: Male

DRUGS (3)
  1. RISPOLEPT CONSTA [Suspect]
     Indication: PRODUCT USED FOR UNKNOWN INDICATION
     Route: 030
     Dates: start: 20130717
  2. RISPOLEPT [Suspect]
     Indication: PRODUCT USED FOR UNKNOWN INDICATION
     Route: 048
     Dates: start: 20130710
  3. BENSEDIN [Concomitant]
     Route: 048

REACTIONS (1)
  - Completed suicide [Fatal]
